FAERS Safety Report 8943817 (Version 1)
Quarter: 2012Q4

REPORT INFORMATION
  Report Type: 
  Country: GB (occurrence: GB)
  Receive Date: 20121204
  Receipt Date: 20121204
  Transmission Date: 20130627
  Serious: Yes (Death)
  Sender: FDA-Public Use
  Company Number: GB-ASTRAZENECA-2012SE90506

PATIENT
  Age: 27393 Day
  Sex: Male
  Weight: 64.1 kg

DRUGS (33)
  1. MEROPENEM [Suspect]
     Indication: ESCHERICHIA URINARY TRACT INFECTION
     Route: 042
     Dates: start: 20121021, end: 20121025
  2. SIMVASTATIN [Interacting]
     Indication: HYPERCHOLESTEROLAEMIA
     Route: 048
     Dates: start: 20110704, end: 20121022
  3. AMLODIPINE [Concomitant]
  4. ASCORBIC ACID [Concomitant]
  5. CLARITHROMYCIN [Concomitant]
  6. COLCHICINE [Concomitant]
  7. CYCLIZINE [Concomitant]
  8. DALTEPARIN SODIUM [Concomitant]
  9. DARBEPOETIN ALFA [Concomitant]
  10. DOXAZOSIN [Concomitant]
  11. FINASTERIDE [Concomitant]
  12. FOLIC ACID [Concomitant]
  13. FUROSEMIDE [Concomitant]
  14. HUMULIN [Concomitant]
  15. HYDROCORTISONE [Concomitant]
  16. HYOSCINE BUTYLBROMIDE [Concomitant]
  17. IPRATROPIUM BROMIDE [Concomitant]
  18. LACTULOSE [Concomitant]
  19. METOCLOPRAMIDE [Concomitant]
  20. MOVICOL [Concomitant]
  21. NEFOPAM [Concomitant]
  22. NICORANDIL [Concomitant]
  23. OMACOR [Concomitant]
  24. PARACETAMOL [Concomitant]
  25. PICOLAX [Concomitant]
  26. RANITIDINE [Concomitant]
  27. SALBUTAMOL [Concomitant]
  28. SENNA [Concomitant]
  29. SEVELAMER [Concomitant]
  30. SODIUM DOCUSATE [Concomitant]
  31. TRIMETHOPRIM [Concomitant]
  32. VITAMIN B COMPLEX STRONG [Concomitant]
  33. ZOPICLONE [Concomitant]

REACTIONS (3)
  - Drug interaction [Fatal]
  - Myopathy [Fatal]
  - Myositis [Fatal]
